FAERS Safety Report 10920589 (Version 2)
Quarter: 2015Q1

REPORT INFORMATION
  Report Type: Report from Study
  Country: BR (occurrence: BR)
  Receive Date: 20150317
  Receipt Date: 20150329
  Transmission Date: 20150721
  Serious: No
  Sender: FDA-Public Use
  Company Number: PHHY2015BR031362

PATIENT
  Sex: Female
  Weight: 58 kg

DRUGS (2)
  1. ANASTROZOL [Concomitant]
     Active Substance: ANASTROZOLE
     Indication: BREAST CANCER
     Dosage: 1 DF, QD
     Route: 048
  2. ACLASTA [Suspect]
     Active Substance: ZOLEDRONIC ACID
     Indication: OSTEOPOROSIS
     Dosage: 1 DF (5MG/100ML), EVERY 6 MONTHS
     Route: 042
     Dates: start: 201307

REACTIONS (1)
  - Inappropriate schedule of drug administration [Unknown]
